FAERS Safety Report 10208577 (Version 1)
Quarter: 2014Q2

REPORT INFORMATION
  Report Type: Spontaneous
  Country: MY (occurrence: MY)
  Receive Date: 20140530
  Receipt Date: 20140530
  Transmission Date: 20141212
  Serious: Yes (Other)
  Sender: FDA-Public Use
  Company Number: MY-BAYER-2014-079601

PATIENT
  Age: 7 Year
  Sex: Female

DRUGS (3)
  1. ULTRAVIST [Suspect]
     Indication: COMPUTERISED TOMOGRAM
     Dosage: 20 ML, ONCE
     Route: 042
     Dates: start: 20121106, end: 20121106
  2. PREDNISOLONE [PREDNISOLONE] [Concomitant]
  3. PARACETAMOL [Concomitant]

REACTIONS (3)
  - Bronchospasm [Recovered/Resolved]
  - Unresponsive to stimuli [Recovered/Resolved]
  - Vomiting [Recovered/Resolved]
